FAERS Safety Report 7462625-9 (Version None)
Quarter: 2011Q2

REPORT INFORMATION
  Report Type: 
  Country: None (occurrence: None)
  Receive Date: 20110506
  Receipt Date: 20110425
  Transmission Date: 20111010
  Serious: Yes (Hospitalization, Other)
  Sender: FDA-Public Use
  Company Number: PHHY2011BR35907

PATIENT
  Sex: Male

DRUGS (8)
  1. SELOZOK [Concomitant]
     Indication: HYPERTENSION
     Dosage: 50 MG, UNK
  2. CENTRUM [Concomitant]
     Indication: SUPPLEMENTATION THERAPY
     Dosage: ONE TABLET IN THE MORNING
     Route: 048
     Dates: start: 20100601
  3. LYRICA [Concomitant]
     Indication: PARAESTHESIA
     Dosage: 1 DF DAILY
     Route: 048
     Dates: start: 20110101
  4. CITALOPRAM [Concomitant]
     Indication: ANXIETY
     Dosage: 20 MG DAILY
     Route: 048
     Dates: start: 20110101
  5. COMPLEX B [Concomitant]
     Indication: PARAESTHESIA
     Dosage: 1 DF, QD
     Route: 048
     Dates: start: 20110101
  6. TAGIFOR C [Concomitant]
     Indication: ANTIVIRAL PROPHYLAXIS
     Dosage: 1 G (1 TABLET DAILY)
     Route: 048
     Dates: start: 20100601
  7. TAMARINE [Concomitant]
     Indication: INTESTINAL FUNCTIONAL DISORDER
     Dosage: 1 DF DAILY
     Route: 048
     Dates: start: 20100901
  8. DIOVAN HCT [Suspect]
     Indication: HYPERTENSION
     Dosage: 160 MG VALS AND 12.5 MG HYDR (1 TABLET DAILY)
     Route: 048

REACTIONS (9)
  - HYPOTENSION [None]
  - URINARY INCONTINENCE [None]
  - HELICOBACTER INFECTION [None]
  - INTESTINAL OBSTRUCTION [None]
  - VOMITING [None]
  - PROSTATOMEGALY [None]
  - BLOOD PRESSURE INCREASED [None]
  - PARAESTHESIA [None]
  - LARGE INTESTINE CARCINOMA [None]
